FAERS Safety Report 6504083-4 (Version None)
Quarter: 2009Q4

REPORT INFORMATION
  Report Type: 
  Country: None (occurrence: None)
  Receive Date: 20091216
  Receipt Date: 20091216
  Transmission Date: 20100525
  Serious: No
  Sender: FDA-Public Use
  Company Number: None

PATIENT
  Age: 11 Year
  Sex: Male
  Weight: 43.9989 kg

DRUGS (1)
  1. SINGULAIR [Suspect]
     Indication: ASTHMA
     Dosage: 1 CHEW TABLET AT BEDTIME PO
     Route: 048
     Dates: start: 20090930, end: 20091112

REACTIONS (2)
  - AGITATION [None]
  - MOVEMENT DISORDER [None]
